FAERS Safety Report 4404525-4 (Version None)
Quarter: 2004Q3

REPORT INFORMATION
  Report Type: 
  Country: None (occurrence: None)
  Receive Date: 20040721
  Receipt Date: 20040721
  Transmission Date: 20050211
  Serious: Yes (Hospitalization)
  Sender: FDA-Public Use
  Company Number: None

PATIENT
  Age: 77 Year
  Sex: Male

DRUGS (14)
  1. INDOCIN [Suspect]
     Indication: PAIN
     Dates: start: 20040314, end: 20040316
  2. ALLOPURINOL [Suspect]
     Indication: PAIN
     Dosage: 100 MG QD
  3. CLOPIDOGREL [Concomitant]
  4. FELODIPINE [Concomitant]
  5. ISOSOBRIDE [Concomitant]
  6. METOPROLOL [Concomitant]
  7. LOSARTAN POTASSIUM [Concomitant]
  8. NITROGLYCERIN [Concomitant]
  9. WARFARIN SODIUM [Concomitant]
  10. AMIODARONE HCL [Concomitant]
  11. LASIX [Concomitant]
  12. GLYBURIDE/METFORMIN [Concomitant]
  13. DIGOXIN [Concomitant]
  14. COMBIENT [Concomitant]

REACTIONS (4)
  - ASTHENIA [None]
  - BLOOD CREATINE INCREASED [None]
  - OEDEMA PERIPHERAL [None]
  - RENAL FAILURE ACUTE [None]
